FAERS Safety Report 6806063-8 (Version None)
Quarter: 2010Q2

REPORT INFORMATION
  Report Type: 
  Country: None (occurrence: None)
  Receive Date: 20100629
  Receipt Date: 20080409
  Transmission Date: 20101027
  Serious: No
  Sender: FDA-Public Use
  Company Number: US-PFIZER INC-2007093658

PATIENT
  Sex: Female
  Weight: 76.66 kg

DRUGS (1)
  1. ZINECARD [Suspect]
     Indication: PROPHYLAXIS
     Route: 042
     Dates: start: 20071026

REACTIONS (1)
  - INFUSION RELATED REACTION [None]
